FAERS Safety Report 19031040 (Version 1)
Quarter: 2021Q1

REPORT INFORMATION
  Report Type: Spontaneous
  Country: US (occurrence: US)
  Receive Date: 20210319
  Receipt Date: 20210319
  Transmission Date: 20210420
  Serious: Yes (Hospitalization)
  Sender: FDA-Public Use
  Company Number: None

PATIENT
  Age: 43 Year
  Sex: Female

DRUGS (11)
  1. OMEPRAZOLE CAP 40 MG [Concomitant]
     Dates: start: 20210125
  2. PRASUGREL TAB 10 MG [Concomitant]
     Dates: start: 20201106
  3. NP THYROID [Concomitant]
     Active Substance: LEVOTHYROXINE\LIOTHYRONINE
     Dates: start: 20201124
  4. GLATIRAMER [Suspect]
     Active Substance: GLATIRAMER
     Indication: COUGH
     Route: 058
     Dates: start: 20200422
  5. GLATIRAMER [Suspect]
     Active Substance: GLATIRAMER
     Indication: MULTIPLE SCLEROSIS
     Route: 058
     Dates: start: 20200422
  6. OXYCOD/APAP TAB 10?325 MG [Concomitant]
     Dates: start: 20210129
  7. HYDROXYCHLOR TAB 200 MG [Concomitant]
     Dates: start: 20210210
  8. ONDANSETRON TAB 80 MG [Concomitant]
     Dates: start: 20210302
  9. AMPHET/DEXTR TAB 10 MG [Concomitant]
     Dates: start: 20210226
  10. ATORVASTATIN TAB 80 MG [Concomitant]
     Dates: start: 20201124
  11. DOXYCYC MONO CAP 100 MG [Concomitant]
     Dates: start: 20210210

REACTIONS (3)
  - Condition aggravated [None]
  - Intentional dose omission [None]
  - Coronary artery disease [None]

NARRATIVE: CASE EVENT DATE: 20210318
